FAERS Safety Report 14676348 (Version 1)
Quarter: 2018Q1

REPORT INFORMATION
  Report Type: Spontaneous
  Country: US (occurrence: US)
  Receive Date: 20180323
  Receipt Date: 20180323
  Transmission Date: 20180509
  Serious: Yes (Disabling, Other)
  Sender: FDA-Public Use
  Company Number: None

PATIENT
  Age: 60 Year
  Sex: Female
  Weight: 77.11 kg

DRUGS (3)
  1. GLAUCOMA EYE DROPS [Concomitant]
  2. NORCO [Concomitant]
     Active Substance: ACETAMINOPHEN\HYDROCODONE BITARTRATE
  3. HARVONI [Suspect]
     Active Substance: LEDIPASVIR\SOFOSBUVIR
     Indication: HEPATITIS C
     Dosage: 90 DAYS LATER
     Route: 048
     Dates: start: 201501

REACTIONS (5)
  - Arthralgia [None]
  - Fatigue [None]
  - Myalgia [None]
  - Tendonitis [None]
  - Tinnitus [None]

NARRATIVE: CASE EVENT DATE: 20150110
